FAERS Safety Report 5136426-0 (Version None)
Quarter: 2006Q4

REPORT INFORMATION
  Report Type: 
  Country: None (occurrence: None)
  Receive Date: 20061027
  Receipt Date: 20050926
  Transmission Date: 20070319
  Serious: No
  Sender: FDA-Public Use
  Company Number: US-BRISTOL-MYERS SQUIBB COMPANY-13121421

PATIENT
  Age: 70 Year
  Sex: Female
  Weight: 86 kg

DRUGS (5)
  1. KENALOG-40 [Suspect]
     Indication: BACK PAIN
     Dosage: ADMINISTERED ON: 22-APR-2005, 29-APR-2005, 13-MAY-2005, AND 29-JUL-005
     Dates: start: 20050422, end: 20050729
  2. KENALOG-40 [Suspect]
     Indication: INTERVERTEBRAL DISC DEGENERATION
     Dosage: ADMINISTERED ON: 22-APR-2005, 29-APR-2005, 13-MAY-2005, AND 29-JUL-005
     Dates: start: 20050422, end: 20050729
  3. KENALOG-40 [Suspect]
     Indication: SCIATICA
     Dosage: ADMINISTERED ON: 22-APR-2005, 29-APR-2005, 13-MAY-2005, AND 29-JUL-005
     Dates: start: 20050422, end: 20050729
  4. KENALOG-40 [Suspect]
     Indication: SPINAL COLUMN STENOSIS
     Dosage: ADMINISTERED ON: 22-APR-2005, 29-APR-2005, 13-MAY-2005, AND 29-JUL-005
     Dates: start: 20050422, end: 20050729
  5. SYNTHROID [Concomitant]

REACTIONS (1)
  - ALOPECIA [None]
